FAERS Safety Report 5876957-9 (Version None)
Quarter: 2008Q3

REPORT INFORMATION
  Report Type: 
  Country: None (occurrence: None)
  Receive Date: 20080910
  Receipt Date: 20080827
  Transmission Date: 20090109
  Serious: Yes (Other)
  Sender: FDA-Public Use
  Company Number: PHBS2008NL04685

PATIENT
  Sex: Female

DRUGS (2)
  1. MYCOPHENOLATE MOFETIL [Suspect]
     Indication: RENAL TRANSPLANT
  2. TACROLIMUS [Suspect]
     Indication: RENAL TRANSPLANT

REACTIONS (4)
  - INTESTINAL DILATATION [None]
  - INTESTINAL OBSTRUCTION [None]
  - LOCALISED INTRAABDOMINAL FLUID COLLECTION [None]
  - SCLEROSING ENCAPSULATING PERITONITIS [None]
